FAERS Safety Report 9255395 (Version 2)
Quarter: 2013Q2

REPORT INFORMATION
  Report Type: Spontaneous
  Country: US (occurrence: US)
  Receive Date: 20130425
  Receipt Date: 20130425
  Transmission Date: 20140414
  Serious: Yes (Other)
  Sender: FDA-Public Use
  Company Number: US-BRISTOL-MYERS SQUIBB COMPANY-16731051

PATIENT
  Age: 85 Year
  Sex: Female

DRUGS (1)
  1. HYDREA CAPS 500 MG [Suspect]
     Indication: PLATELET COUNT INCREASED
     Dosage: 1990
     Dates: start: 1990

REACTIONS (2)
  - Skin ulcer [Not Recovered/Not Resolved]
  - Osteomyelitis [Unknown]
